FAERS Safety Report 19570425 (Version 1)
Quarter: 2021Q3

REPORT INFORMATION
  Report Type: Spontaneous
  Country: IR (occurrence: IR)
  Receive Date: 20210715
  Receipt Date: 20210715
  Transmission Date: 20211014
  Serious: Yes (Hospitalization, Other)
  Sender: FDA-Public Use
  Company Number: IR-SA-2021SA231590

PATIENT
  Age: 87 Year
  Sex: Male

DRUGS (7)
  1. ENOXAPARIN SODIUM. [Suspect]
     Active Substance: ENOXAPARIN SODIUM
     Route: 058
  2. VANCOMYCIN [Suspect]
     Active Substance: VANCOMYCIN
  3. MEROPENEM. [Suspect]
     Active Substance: MEROPENEM
  4. AZITHROMYCIN ANHYDROUS. [Suspect]
     Active Substance: AZITHROMYCIN ANHYDROUS
  5. OXYGEN. [Suspect]
     Active Substance: OXYGEN
  6. LOSARTAN. [Concomitant]
     Active Substance: LOSARTAN
     Indication: HYPERTENSION
     Dosage: 25 MG, QD
  7. ACETYLSALICYLIC ACID [Suspect]
     Active Substance: ASPIRIN
     Dosage: 80 MG, QD

REACTIONS (3)
  - Haemoglobin decreased [Recovered/Resolved]
  - Retroperitoneal haematoma [Unknown]
  - Off label use [Unknown]
